FAERS Safety Report 4539568-3 (Version None)
Quarter: 2004Q4

REPORT INFORMATION
  Report Type: 
  Country: None (occurrence: None)
  Receive Date: 20041222
  Receipt Date: 20041209
  Transmission Date: 20050328
  Serious: Yes (Hospitalization, Disabling)
  Sender: FDA-Public Use
  Company Number: FR-2004-033408

PATIENT
  Age: 39 Year
  Sex: Male

DRUGS (4)
  1. REFLUDAN (LEPIRUDIN) LOPHILIZED DRY SUBSTANCE [Suspect]
     Indication: HEPARIN-INDUCED THROMBOCYTOPENIA
     Dosage: 1.5 MG/H, IV DRIP
     Route: 041
     Dates: start: 20040124
  2. REFLUDAN REGIMEN [Suspect]
     Indication: HEPARIN-INDUCED THROMBOCYTOPENIA
     Dosage: 5 MG, 1 DOSE, IV BOLUS
     Route: 040
     Dates: start: 20040124
  3. REFLUDAN REGIMEN [Suspect]
     Indication: HEPARIN-INDUCED THROMBOCYTOPENIA
     Dosage: 0.1 MG/H, IV DRIP
     Route: 041
  4. ORGARAN [Concomitant]

REACTIONS (8)
  - COMA [None]
  - CONFUSIONAL STATE [None]
  - FEEDING DISORDER [None]
  - HAEMODIALYSIS [None]
  - LEG AMPUTATION [None]
  - PERIPHERAL ISCHAEMIA [None]
  - QUADRIPLEGIA [None]
  - RENAL FAILURE [None]
